FAERS Safety Report 5386689-1 (Version None)
Quarter: 2007Q3

REPORT INFORMATION
  Report Type: 
  Country: None (occurrence: None)
  Receive Date: 20070713
  Receipt Date: 20070705
  Transmission Date: 20080115
  Serious: Yes (Other)
  Sender: FDA-Public Use
  Company Number: GB-BRISTOL-MYERS SQUIBB COMPANY-13836325

PATIENT
  Weight: 3 kg

DRUGS (3)
  1. DIDANOSINE [Suspect]
     Indication: HUMAN IMMUNODEFICIENCY VIRUS TRANSMISSION
     Dosage: INFANT: DIDANOSINE WAS ADMINISTERED FOR 6 WEEKS AND THEN REPLACED WITH LAMIVUDINE, ABACAVIR
     Route: 064
  2. NEVIRAPINE [Suspect]
     Indication: HUMAN IMMUNODEFICIENCY VIRUS TRANSMISSION
     Dosage: INFANT: NEVIRAPINE WAS ADMINISTERED FOR 6 WEEKS AND THEN REPLACED WITH LAMIVUDINE, ABACAVIR
     Route: 064
  3. ZIDOVUDINE [Suspect]
     Indication: HUMAN IMMUNODEFICIENCY VIRUS TRANSMISSION
     Dosage: INFANT: RECEIVED FOR 6 WEEKS AND THEN CONTINUED WITH THE SAME MEDICATION
     Route: 064

REACTIONS (5)
  - FAILURE TO THRIVE [None]
  - HEPATOSPLENOMEGALY [None]
  - HIV INFECTION [None]
  - LYMPHADENOPATHY [None]
  - PREGNANCY [None]
